FAERS Safety Report 11448588 (Version 1)
Quarter: 2015Q3

REPORT INFORMATION
  Report Type: Spontaneous
  Country: US (occurrence: US)
  Receive Date: 20150902
  Receipt Date: 20150902
  Transmission Date: 20151125
  Serious: No
  Sender: FDA-Public Use
  Company Number: US-PFIZER INC-2015216856

PATIENT
  Age: 83 Year
  Sex: Female

DRUGS (65)
  1. LYRICA [Suspect]
     Active Substance: PREGABALIN
     Dosage: 50 MG,(TAKE 1/2 TAB QHSX7, THEN 1 TAB QHSX7,THEN 1/2 TAB AM AND 1 TAB QHSX7 THE 1 TAB BID THERAFTER)
  2. ULTRAM [Concomitant]
     Active Substance: TRAMADOL HYDROCHLORIDE
     Indication: PAIN
     Dosage: 50 MG, (TAKE 1 TO 2 TABLETS BY MOUTH EVERY 4 TO 6 HOURS) AS NEEDED (MAX 8 TABS IN 24 HOURS)
     Route: 048
  3. TRAMADOL HCL [Concomitant]
     Active Substance: TRAMADOL HYDROCHLORIDE
     Dosage: 50 MG, 2X/DAY
     Route: 048
  4. LUCENTIS [Concomitant]
     Active Substance: RANIBIZUMAB
     Indication: MACULAR DEGENERATION
     Dosage: 0.3 MG/0.05ML SOLN, MONTHLY
  5. TYLENOL ARTHRITIS PAIN [Concomitant]
     Active Substance: ACETAMINOPHEN
     Indication: OSTEOARTHRITIS
     Dosage: 650 MG, (AT BEDTIME)
     Route: 048
  6. CLINDAMYCIN HCL [Concomitant]
     Active Substance: CLINDAMYCIN HYDROCHLORIDE
     Indication: OSTEOARTHRITIS
  7. DICYCLOMINE HCL [Concomitant]
     Active Substance: DICYCLOMINE HYDROCHLORIDE
     Indication: IRRITABLE BOWEL SYNDROME
     Dosage: 10 MG, (DAILY) AS NEEDED
     Route: 048
  8. VITAMIN D [Concomitant]
     Active Substance: CHOLECALCIFEROL
     Indication: VITAMIN D DEFICIENCY
  9. METOCLOPRAMIDE HCL [Concomitant]
     Active Substance: METOCLOPRAMIDE HYDROCHLORIDE
     Dosage: 5 MG, (TID) AS NEEDED
     Route: 048
  10. LYRICA [Suspect]
     Active Substance: PREGABALIN
     Dosage: 50 MG, 2X/DAY
  11. LYRICA [Suspect]
     Active Substance: PREGABALIN
     Dosage: 25 MG, (TAKE 1 CAP QOD X7 DAYS, 1 CAP X7 DAYS, 1 CAP BID THEREAFTER)
  12. LYRICA [Suspect]
     Active Substance: PREGABALIN
     Dosage: 25 MG, 1X/DAY
     Route: 048
     Dates: start: 201506
  13. FERROUS SULFATE [Concomitant]
     Active Substance: FERROUS SULFATE\FERROUS SULFATE, DRIED
     Dosage: 325 (65 FE) MG, 2X/DAY
     Route: 048
  14. PREVACID [Concomitant]
     Active Substance: LANSOPRAZOLE
     Dosage: 30 MG, 1X/DAY
  15. BIOTIN [Concomitant]
     Active Substance: BIOTIN
     Dosage: 1000 ?G, 1X/DAY
  16. VITAMIN D3 [Concomitant]
     Active Substance: CHOLECALCIFEROL
     Dosage: 3000 DF, DAILY
     Route: 048
  17. METHYLPREDNISOLONE. [Concomitant]
     Active Substance: METHYLPREDNISOLONE
     Indication: BACK PAIN
     Dosage: 4 MG, 3X/DAY (DAY 2) (TAKE WITH FOOD)
  18. METHYLPREDNISOLONE. [Concomitant]
     Active Substance: METHYLPREDNISOLONE
     Dosage: 4 MG, 2X/DAY (DAY 3) (TAKE WITH FOOD)
  19. MOBIC [Concomitant]
     Active Substance: MELOXICAM
     Indication: OSTEOARTHRITIS
     Dosage: 15 MG, 1X/DAY
  20. SILENOR [Concomitant]
     Active Substance: DOXEPIN HYDROCHLORIDE
     Indication: INSOMNIA
     Dosage: 3 MG, 1X/DAY
  21. HYDROCODONE-HOMATROPINE [Concomitant]
     Indication: COUGH
     Dosage: HYDROCODONE 5MG-HOMATROPINE 1.5MG/5ML (8 FLUID OUNCE), (1 TSP EVERY 4 HOURS)AS NEEDED
  22. XANAX [Concomitant]
     Active Substance: ALPRAZOLAM
     Indication: ESSENTIAL TREMOR
     Dosage: 0.25 MG, DAILY
     Route: 048
  23. XELODA [Concomitant]
     Active Substance: CAPECITABINE
     Indication: BRONCHIAL DISORDER
     Dosage: 1500 MG, 2X/DAY
  24. METHYLPREDNISOLONE. [Concomitant]
     Active Substance: METHYLPREDNISOLONE
     Indication: ENTHESOPATHY
     Dosage: 4 MG, 4X/DAY (DAY 1) (TAKE WITH FOOD)
  25. CLINDAMYCIN HCL [Concomitant]
     Active Substance: CLINDAMYCIN HYDROCHLORIDE
     Indication: PROPHYLAXIS
     Dosage: 600 MG, (1 HOUR PRIOR TO PROCEDURE)
     Route: 048
  26. COLACE [Concomitant]
     Active Substance: DOCUSATE SODIUM
     Indication: CONSTIPATION
     Dosage: 100 MG, 2X/DAY
  27. COLACE [Concomitant]
     Active Substance: DOCUSATE SODIUM
     Dosage: MAY INCREASE TO 200 MG, BID AS NEEDED
     Route: 048
  28. OXYBUTYNIN CHLORIDE. [Concomitant]
     Active Substance: OXYBUTYNIN CHLORIDE
     Indication: POLLAKIURIA
     Dosage: 5 MG, 1X/DAY
  29. ZOLPIDEM TARTRATE. [Concomitant]
     Active Substance: ZOLPIDEM TARTRATE
     Indication: SLEEP DISORDER DUE TO GENERAL MEDICAL CONDITION, INSOMNIA TYPE
     Dosage: 1/2 OR 1 AT BEDTIME , AS NEEDED
  30. LYRICA [Suspect]
     Active Substance: PREGABALIN
     Indication: OSTEOARTHRITIS
     Dosage: 50 MG, ALTERNATE DAY
  31. GABAPENTIN. [Concomitant]
     Active Substance: GABAPENTIN
     Dosage: 100 MG, 3X/DAY
     Route: 048
  32. AMBIEN [Concomitant]
     Active Substance: ZOLPIDEM TARTRATE
     Dosage: 10 MG, AS NEEDED (QHS - 1 EVERY BEDTIME)
  33. BENADRYL [Concomitant]
     Active Substance: DIPHENHYDRAMINE HYDROCHLORIDE
     Indication: COUGH
     Dosage: 50 MG/ML, AS NEEDED (1 EVERY BEDTIME)
  34. ULTRAM [Concomitant]
     Active Substance: TRAMADOL HYDROCHLORIDE
     Indication: HIP ARTHROPLASTY
  35. LYRICA [Suspect]
     Active Substance: PREGABALIN
     Indication: FIBROMYALGIA
     Dosage: 50 MG, 1X/DAY
  36. VALIUM [Concomitant]
     Active Substance: DIAZEPAM
     Indication: ANXIETY
     Dosage: (1/2 -1 TAB PO Q8H), AS NEEDED (TWICE A DAY)
     Route: 048
  37. TUSSIONEX PENNKINETIC ER [Concomitant]
     Indication: COUGH
     Dosage: CHLORPHENAMINE 10MG-HYDROCODONE BITARTRATE 8MG/5ML (4 FLUID OUNCE) (1 TSP PO Q 12H) AS NEEDED
     Route: 048
  38. HYDROCODONE BITARTRATE AND ACETAMINOPHEN [Concomitant]
     Active Substance: ACETAMINOPHEN\HYDROCODONE BITARTRATE
     Indication: PAIN
     Dosage: HYDROCODONE 5MG-ACETAMINOPHEN 325MG (TAKE 1/2 TO 1 TABLET BY MOUTH EVERY 4 HOURS) AS NEEDED
     Route: 048
  39. CIPRO [Concomitant]
     Active Substance: CIPROFLOXACIN HYDROCHLORIDE
     Indication: URINARY TRACT INFECTION
     Dosage: UNK, 2X/DAY
  40. PROAIR HFA [Concomitant]
     Active Substance: ALBUTEROL SULFATE
     Indication: COUGH
     Dosage: 108 (90 BASE) MCG/ACT (2 INHALTIONS PO Q4HR), AS NEEDED
     Route: 048
  41. DOXEPIN HCL [Concomitant]
     Active Substance: DOXEPIN HYDROCHLORIDE
     Indication: INSOMNIA
     Dosage: DOXEPIN HCI 10 MG/ML CONC (0.3 -0.6 ML PO QHS PRN SLEEP) AS NEEDED
     Route: 048
  42. DETROL LA [Concomitant]
     Active Substance: TOLTERODINE TARTRATE
     Dosage: 4 MG, 1X/DAY
  43. TYLENOL [Concomitant]
     Active Substance: ACETAMINOPHEN
     Dosage: 325 MG, AS NEEDED
  44. LIBRAX [Concomitant]
     Active Substance: CHLORDIAZEPOXIDE HYDROCHLORIDE\CLIDINIUM BROMIDE
     Dosage: CHLORDIAZEPOXIDE HYDROCHLORIDE 5MG- CLIDINIUM BROMIDE 2.5MG, 2X/DAY
  45. VALIUM [Concomitant]
     Active Substance: DIAZEPAM
     Dosage: 1/2QD - 1/2 DAILY (AS NEEDED)
  46. XANAX [Concomitant]
     Active Substance: ALPRAZOLAM
     Indication: ANXIETY
  47. FLONASE [Concomitant]
     Active Substance: FLUTICASONE PROPIONATE
     Indication: NASAL CONGESTION
     Dosage: (50 MCG/ACT) 2 DF, (2 PUFFS DAILY)AS NEEDED
  48. OMEPRAZOLE. [Concomitant]
     Active Substance: OMEPRAZOLE
     Dosage: 40 MG, 1X/DAY
  49. NASONEX [Concomitant]
     Active Substance: MOMETASONE FUROATE
     Dosage: (50 MCG/ACT SUSP) 2 DF, 1X/DAY (2 SPRAYS EACH NOSTRIL QD)
     Route: 045
  50. TOVIAZ [Concomitant]
     Active Substance: FESOTERODINE FUMARATE
     Dosage: 8 MG, (AT BEDTIME)
  51. VALIUM [Concomitant]
     Active Substance: DIAZEPAM
     Dosage: 5 MG, DAILY (AS NEEDED)
     Route: 048
  52. DOXEPIN HYDROCHLORIDE. [Concomitant]
     Active Substance: DOXEPIN HYDROCHLORIDE
     Indication: INSOMNIA
     Dosage: 10 MG, AS NEEDED
     Route: 048
  53. CLARITIN [Concomitant]
     Active Substance: LORATADINE
     Dosage: 10 MG, 1X/DAY
  54. TRAMADOL HCL [Concomitant]
     Active Substance: TRAMADOL HYDROCHLORIDE
     Indication: PAIN
     Dosage: 50 MG, AS NEEDED (1 TAB PO BID PRN)
     Route: 048
  55. TOVIAZ [Concomitant]
     Active Substance: FESOTERODINE FUMARATE
     Indication: POLLAKIURIA
     Dosage: 4 MG, (AT BEDTIME)
     Route: 048
  56. REGLAN [Concomitant]
     Active Substance: METOCLOPRAMIDE HYDROCHLORIDE
     Dosage: 5 MG, 3X/DAY (Q AC)
  57. TRAZODONE HYDROCHLORIDE. [Concomitant]
     Active Substance: TRAZODONE HYDROCHLORIDE
     Dosage: 100 MG, 1X/DAY (QHS)
  58. HYDROCODONE BITARTRATE AND ACETAMINOPHEN [Concomitant]
     Active Substance: ACETAMINOPHEN\HYDROCODONE BITARTRATE
     Indication: PAIN
  59. TRIAZOLAM. [Concomitant]
     Active Substance: TRIAZOLAM
     Indication: INSOMNIA
     Dosage: 0.125 MG, (1 TAB PO QHS PM SLEEP) BEDTIME
     Route: 048
  60. XELODA [Concomitant]
     Active Substance: CAPECITABINE
     Indication: LUNG DISORDER
  61. AMBIEN [Concomitant]
     Active Substance: ZOLPIDEM TARTRATE
     Dosage: 5 MG, DAILY
  62. TYLENOL WITH CODEINE [Concomitant]
     Active Substance: ACETAMINOPHEN\CODEINE PHOSPHATE
     Indication: PAIN
     Dosage: TYLENOL 300MG - CODEINE 30MG, (Q4-6H - 1 EVERY 4 - 6 HOURS)  AS NEEDED
  63. METHYLPREDNISOLONE. [Concomitant]
     Active Substance: METHYLPREDNISOLONE
     Dosage: 4 MG, 1X/DAY (DAY 4: 1 QAM) (TAKE WITH FOOD)
  64. MIRALAX PACK [Concomitant]
     Indication: CONSTIPATION
     Dosage: 1 DF, (1 PACKET IN 6-8 OZ FLUID PO DAILY) AS NEEDED (MAY INCREASE DOSE PRN)
     Route: 048
  65. PERCOCET [Concomitant]
     Active Substance: ACETAMINOPHEN\OXYCODONE HYDROCHLORIDE
     Indication: PAIN
     Dosage: (OXYCODONE HYDROCHLORIDE 5MG- PARACETAMOL 325 MG), AS NEEDED

REACTIONS (3)
  - Product use issue [Unknown]
  - Lip swelling [Recovered/Resolved]
  - Drug hypersensitivity [Recovered/Resolved]

NARRATIVE: CASE EVENT DATE: 20150724
